FAERS Safety Report 4700171-3 (Version None)
Quarter: 2005Q2

REPORT INFORMATION
  Report Type: 
  Country: None (occurrence: None)
  Receive Date: 20050627
  Receipt Date: 20050615
  Transmission Date: 20051028
  Serious: Yes (Other)
  Sender: FDA-Public Use
  Company Number: PHBS2005GR08845

PATIENT
  Age: 28 Year
  Sex: Female

DRUGS (2)
  1. DEFEROXAMINE [Suspect]
     Indication: CHELATION THERAPY
     Dosage: 50 MG/KG 5 DAYS/WEEK
     Route: 042
  2. DIGOXIN [Suspect]
     Indication: CONGESTIVE CARDIOMYOPATHY
     Dosage: 0.125 MG 5 DAYS/WEEK

REACTIONS (11)
  - CAESAREAN SECTION [None]
  - CONGESTIVE CARDIOMYOPATHY [None]
  - DILATATION VENTRICULAR [None]
  - DRUG EXPOSURE DURING PREGNANCY [None]
  - DYSPNOEA [None]
  - EJECTION FRACTION DECREASED [None]
  - ELECTROCARDIOGRAM T WAVE INVERSION [None]
  - FATIGUE [None]
  - GALLOP RHYTHM PRESENT [None]
  - PREMATURE BABY [None]
  - SERUM FERRITIN INCREASED [None]
